FAERS Safety Report 25952240 (Version 1)
Quarter: 2025Q4

REPORT INFORMATION
  Report Type: Spontaneous
  Country: US (occurrence: None)
  Receive Date: 20251022
  Receipt Date: 20251022
  Transmission Date: 20260118
  Serious: Yes (Other)
  Sender: FDA-CTU
  Company Number: None

PATIENT
  Age: 50 Year
  Sex: Female
  Weight: 74.25 kg

DRUGS (1)
  1. ZEPBOUND [Suspect]
     Active Substance: TIRZEPATIDE
     Indication: Weight decreased
     Dates: start: 20250926, end: 20250927

REACTIONS (5)
  - Pruritus [None]
  - Rash papular [None]
  - Rash erythematous [None]
  - Herpes zoster [None]
  - Hypersensitivity [None]

NARRATIVE: CASE EVENT DATE: 20251022
